FAERS Safety Report 15188437 (Version 6)
Quarter: 2018Q3

REPORT INFORMATION
  Report Type: Report from Study
  Country: US (occurrence: US)
  Receive Date: 20180724
  Receipt Date: 20180912
  Transmission Date: 20181010
  Serious: Yes (Hospitalization)
  Sender: FDA-Public Use
  Company Number: US-ASTRAZENECA-2018SE91978

PATIENT
  Age: 75 Year
  Sex: Female

DRUGS (32)
  1. ACALABRUTINIB. [Suspect]
     Active Substance: ACALABRUTINIB
     Indication: MANTLE CELL LYMPHOMA
     Route: 048
     Dates: start: 20180731, end: 20180731
  2. BENADRYL [Concomitant]
     Active Substance: DIPHENHYDRAMINE HYDROCHLORIDE
     Indication: PREMEDICATION
     Dosage: 25.0MG ONCE/SINGLE ADMINISTRATION
     Route: 042
     Dates: start: 20180703, end: 20180703
  3. COMPAZINE [Concomitant]
     Active Substance: PROCHLORPERAZINE MALEATE
     Indication: NAUSEA
     Dosage: 10.0MG ONCE/SINGLE ADMINISTRATION
     Route: 042
     Dates: start: 20180705, end: 20180705
  4. SIMETHICONE (DIMETHICONE) [Concomitant]
     Active Substance: DIMETHICONE
     Indication: FLATULENCE
     Dosage: 80.0MG AS REQUIRED
     Route: 048
     Dates: start: 20180704, end: 20180705
  5. SODIUM CHLORIDE. [Concomitant]
     Active Substance: SODIUM CHLORIDE
     Indication: BLOOD CREATININE INCREASED
     Dosage: 500.0ML AS REQUIRED
     Route: 042
     Dates: start: 20180709
  6. BENDAMUSTINE [Suspect]
     Active Substance: BENDAMUSTINE
     Indication: MANTLE CELL LYMPHOMA
     Dosage: 172.5MG ONCE/SINGLE ADMINISTRATION
     Route: 042
     Dates: start: 20180703, end: 20180703
  7. ACALABRUTINIB. [Suspect]
     Active Substance: ACALABRUTINIB
     Indication: MANTLE CELL LYMPHOMA
     Route: 048
     Dates: start: 20180706, end: 20180706
  8. ULTRAM [Concomitant]
     Active Substance: TRAMADOL HYDROCHLORIDE
     Indication: HEADACHE
     Dosage: 50.0MG AS REQUIRED
     Route: 048
     Dates: start: 20180704, end: 20180704
  9. NEURONTIN [Concomitant]
     Active Substance: GABAPENTIN
     Indication: NEUROPATHY PERIPHERAL
     Route: 048
     Dates: start: 20180704, end: 20180707
  10. SODIUM CHLORIDE. [Concomitant]
     Active Substance: SODIUM CHLORIDE
     Indication: DEHYDRATION
     Dosage: 500.0ML AS REQUIRED
     Route: 042
     Dates: start: 20180709
  11. SENOKOT?S [Concomitant]
     Active Substance: DOCUSATE SODIUM\SENNOSIDES
     Indication: CONSTIPATION
     Dosage: 1.0DF AS REQUIRED
     Route: 048
     Dates: start: 20180702
  12. ATIVAN [Concomitant]
     Active Substance: LORAZEPAM
     Indication: ANXIETY
     Dosage: 0.5MG ONCE/SINGLE ADMINISTRATION
     Route: 042
     Dates: start: 20180706, end: 20180706
  13. ACALABRUTINIB. [Suspect]
     Active Substance: ACALABRUTINIB
     Indication: MANTLE CELL LYMPHOMA
     Route: 048
     Dates: start: 20180707, end: 20180707
  14. BENDAMUSTINE [Suspect]
     Active Substance: BENDAMUSTINE
     Indication: MANTLE CELL LYMPHOMA
     Dosage: 172.5MG ONCE/SINGLE ADMINISTRATION
     Route: 042
     Dates: start: 20180704, end: 20180704
  15. BENDAMUSTINE [Suspect]
     Active Substance: BENDAMUSTINE
     Indication: MANTLE CELL LYMPHOMA
     Dosage: 172.5MG ONCE/SINGLE ADMINISTRATION
     Route: 042
     Dates: start: 20180801, end: 20180802
  16. MIRALAX [Concomitant]
     Active Substance: POLYETHYLENE GLYCOL 3350
     Indication: CONSTIPATION
     Dosage: 17.0G AS REQUIRED
     Route: 048
     Dates: start: 20180702
  17. MIRALAX [Concomitant]
     Active Substance: POLYETHYLENE GLYCOL 3350
     Indication: CONSTIPATION
     Dosage: 17.0G AS REQUIRED
     Route: 048
     Dates: start: 20180715, end: 20180715
  18. RENAGEL [Concomitant]
     Active Substance: SEVELAMER HYDROCHLORIDE
     Indication: HYPERPHOSPHATAEMIA
     Route: 048
     Dates: start: 20180704, end: 20180706
  19. ACALABRUTINIB. [Suspect]
     Active Substance: ACALABRUTINIB
     Indication: MANTLE CELL LYMPHOMA
     Route: 048
     Dates: start: 20180702, end: 20180702
  20. ACALABRUTINIB. [Suspect]
     Active Substance: ACALABRUTINIB
     Indication: MANTLE CELL LYMPHOMA
     Route: 048
     Dates: start: 20180717, end: 20180730
  21. BENDAMUSTINE [Suspect]
     Active Substance: BENDAMUSTINE
     Indication: MANTLE CELL LYMPHOMA
     Dosage: 172.5MG ONCE/SINGLE ADMINISTRATION
     Route: 042
     Dates: start: 20180801, end: 20180801
  22. RITUXIMAB. [Suspect]
     Active Substance: RITUXIMAB
     Indication: MANTLE CELL LYMPHOMA
     Dosage: 360.0MG ONCE/SINGLE ADMINISTRATION
     Route: 042
     Dates: start: 20180703, end: 20180703
  23. SIMETHICONE (DIMETHICONE) [Concomitant]
     Active Substance: DIMETHICONE
     Indication: ABDOMINAL PAIN
     Dosage: 80.0MG AS REQUIRED
     Route: 048
     Dates: start: 20180704, end: 20180705
  24. MORPHINE [Concomitant]
     Active Substance: MORPHINE
     Indication: PAIN
     Route: 042
     Dates: start: 20180706, end: 20180707
  25. ACALABRUTINIB. [Suspect]
     Active Substance: ACALABRUTINIB
     Indication: MANTLE CELL LYMPHOMA
     Route: 048
     Dates: start: 20180716, end: 20180716
  26. ACALABRUTINIB. [Suspect]
     Active Substance: ACALABRUTINIB
     Indication: MANTLE CELL LYMPHOMA
     Route: 048
     Dates: start: 20180801, end: 20180802
  27. RITUXIMAB. [Suspect]
     Active Substance: RITUXIMAB
     Indication: MANTLE CELL LYMPHOMA
     Dosage: 720.0MG ONCE/SINGLE ADMINISTRATION
     Route: 042
     Dates: start: 20180731, end: 20180731
  28. BENADRYL [Concomitant]
     Active Substance: DIPHENHYDRAMINE HYDROCHLORIDE
     Indication: PREMEDICATION
     Dosage: 12.5MG ONCE/SINGLE ADMINISTRATION
     Route: 042
     Dates: start: 20180706, end: 20180706
  29. ACALABRUTINIB. [Suspect]
     Active Substance: ACALABRUTINIB
     Indication: MANTLE CELL LYMPHOMA
     Route: 048
     Dates: start: 20180703, end: 20180705
  30. ACALABRUTINIB. [Suspect]
     Active Substance: ACALABRUTINIB
     Indication: MANTLE CELL LYMPHOMA
     Route: 048
     Dates: start: 20180708, end: 20180715
  31. COMPAZINE [Concomitant]
     Active Substance: PROCHLORPERAZINE MALEATE
     Indication: NAUSEA
     Dosage: 10.0MG ONCE/SINGLE ADMINISTRATION
     Route: 042
     Dates: start: 20180703, end: 20180703
  32. ATIVAN [Concomitant]
     Active Substance: LORAZEPAM
     Indication: ANXIETY
     Dosage: 0.5MG ONCE/SINGLE ADMINISTRATION
     Route: 042
     Dates: start: 20180707, end: 20180707

REACTIONS (2)
  - Dehydration [Recovered/Resolved]
  - Chylothorax [Not Recovered/Not Resolved]

NARRATIVE: CASE EVENT DATE: 20180716
